FAERS Safety Report 7249528-X (Version None)
Quarter: 2011Q1

REPORT INFORMATION
  Report Type: 
  Country: None (occurrence: None)
  Receive Date: 20110128
  Receipt Date: 20101123
  Transmission Date: 20110831
  Serious: Yes (Other)
  Sender: FDA-Public Use
  Company Number: US-BAYER-201037949NA

PATIENT
  Sex: Female
  Weight: 99.32 kg

DRUGS (12)
  1. AZITHROMYCIN [Concomitant]
     Dosage: 250 MG, UNK
     Dates: start: 20070123
  2. OCELLA [Suspect]
     Indication: ACNE
  3. YASMIN [Suspect]
     Indication: CONTRACEPTION
     Dosage: UNK
     Dates: start: 20050101, end: 20080101
  4. ALLEGRA D 24 HOUR [Concomitant]
  5. ACIPHEX [Concomitant]
     Dosage: 20 MG, UNK
  6. REGLAN [Concomitant]
     Dosage: 10 MG, QID
  7. NAPROXEN [Concomitant]
     Dosage: 500 MG, UNK
     Dates: start: 20070123
  8. MULTI-VITAMIN [Concomitant]
  9. PROMETHASIN [Concomitant]
     Dosage: 25 MG, PRN
  10. YAZ [Suspect]
     Indication: CONTRACEPTION
     Dosage: UNK
     Dates: start: 20050101, end: 20080101
  11. NEXIUM [Concomitant]
  12. APAP W/ CODEINE [Concomitant]
     Dosage: UNK
     Dates: start: 20070123

REACTIONS (11)
  - CHOLECYSTITIS CHRONIC [None]
  - BILIARY DYSKINESIA [None]
  - ABDOMINAL PAIN UPPER [None]
  - VOMITING [None]
  - DIARRHOEA [None]
  - NAUSEA [None]
  - INJURY [None]
  - CHOLESTEROSIS [None]
  - CHOLELITHIASIS [None]
  - GASTRIC DISORDER [None]
  - CONSTIPATION [None]
